FAERS Safety Report 10023821 (Version 2)
Quarter: 2014Q1

REPORT INFORMATION
  Report Type: Spontaneous
  Country: US (occurrence: US)
  Receive Date: 20140320
  Receipt Date: 20140320
  Transmission Date: 20141002
  Serious: Yes (Disabling)
  Sender: FDA-Public Use
  Company Number: US-GE HEALTHCARE MEDICAL DIAGNOSTICS-OSCN-PR-0908S-0407

PATIENT
  Sex: Male

DRUGS (12)
  1. OMNISCAN [Suspect]
     Indication: CENTRAL NERVOUS SYSTEM LESION
     Route: 042
     Dates: start: 20051025, end: 20051025
  2. OMNISCAN [Suspect]
     Indication: BRAIN ABSCESS
     Route: 042
     Dates: start: 20051031, end: 20051031
  3. OMNISCAN [Suspect]
     Indication: CRANIOTOMY
     Route: 042
     Dates: start: 20051108, end: 20051108
  4. OMNISCAN [Suspect]
     Indication: CENTRAL NERVOUS SYSTEM LESION
     Route: 042
     Dates: start: 20051219, end: 20051219
  5. OMNISCAN [Suspect]
     Indication: CRANIOTOMY
     Route: 042
     Dates: start: 20060118, end: 20060118
  6. OMNISCAN [Suspect]
     Indication: MENTAL STATUS CHANGES
     Route: 042
     Dates: start: 20060221, end: 20060221
  7. OMNISCAN [Suspect]
     Indication: ARTHRALGIA
     Route: 042
     Dates: start: 20060317, end: 20060317
  8. OMNISCAN [Suspect]
     Indication: ASPERGILLUS INFECTION
     Route: 042
     Dates: start: 20060330, end: 20060330
  9. OMNISCAN [Suspect]
     Indication: ARTHRALGIA
     Route: 042
     Dates: start: 20060331, end: 20060331
  10. OMNISCAN [Suspect]
     Indication: ABSCESS FUNGAL
     Route: 042
     Dates: start: 20060403, end: 20060403
  11. OMNISCAN [Suspect]
     Indication: OEDEMA PERIPHERAL
     Route: 042
     Dates: start: 20060727, end: 20060727
  12. OMNISCAN [Suspect]
     Indication: CONVULSION
     Route: 042
     Dates: start: 20070326, end: 20070326

REACTIONS (1)
  - Nephrogenic systemic fibrosis [Not Recovered/Not Resolved]
